FAERS Safety Report 6092248-8 (Version None)
Quarter: 2009Q1

REPORT INFORMATION
  Report Type: 
  Country: None (occurrence: None)
  Receive Date: 20090225
  Receipt Date: 20090220
  Transmission Date: 20090719
  Serious: Yes (Life-Threatening, Other)
  Sender: FDA-Public Use
  Company Number: A0769501A

PATIENT
  Age: 79 Year
  Sex: Male
  Weight: 88.2 kg

DRUGS (2)
  1. AVODART [Suspect]
     Indication: BENIGN PROSTATIC HYPERPLASIA
     Dosage: .5MG PER DAY
     Route: 048
     Dates: start: 20081101, end: 20090212
  2. PRAVASTATIN [Concomitant]

REACTIONS (1)
  - BLOOD POTASSIUM INCREASED [None]
